FAERS Safety Report 24286696 (Version 2)
Quarter: 2024Q3

REPORT INFORMATION
  Report Type: Spontaneous
  Country: US (occurrence: US)
  Receive Date: 20240905
  Receipt Date: 20240920
  Transmission Date: 20241016
  Serious: No
  Sender: PFIZER
  Company Number: US-PFIZER INC-202400249896

PATIENT
  Age: 62 Year
  Sex: Male
  Weight: 79.38 kg

DRUGS (9)
  1. NURTEC ODT [Suspect]
     Active Substance: RIMEGEPANT SULFATE
     Indication: Migraine
     Dosage: 75 MG, ALTERNATE DAY
     Route: 060
     Dates: start: 20230101
  2. LISINOPRIL [Concomitant]
     Active Substance: LISINOPRIL
     Dosage: 5 MG, 1X/DAY
  3. METOPROLOL [Concomitant]
     Active Substance: METOPROLOL
     Dosage: 12.5 MG, 1X/DAY
  4. OMEPRAZOLE [Concomitant]
     Active Substance: OMEPRAZOLE
     Dosage: 40 MG, 1X/DAY
  5. ATORVASTATIN [Concomitant]
     Active Substance: ATORVASTATIN
     Indication: Cardiac disorder
     Dosage: 40 MG
  6. CIALIS [Concomitant]
     Active Substance: TADALAFIL
     Dosage: 5 MG, DAILY
  7. ASPIRIN [Concomitant]
     Active Substance: ASPIRIN
     Dosage: 81 MG, 1X/DAY
  8. VALSARTAN [Concomitant]
     Active Substance: VALSARTAN
     Indication: Blood cholesterol abnormal
     Dosage: UNK
  9. ALFUZOSIN [Concomitant]
     Active Substance: ALFUZOSIN
     Indication: Prostatic disorder
     Dosage: 10 MG, DAILY

REACTIONS (4)
  - Drug ineffective [Not Recovered/Not Resolved]
  - Visual impairment [Unknown]
  - Feeling hot [Unknown]
  - Incorrect route of product administration [Unknown]

NARRATIVE: CASE EVENT DATE: 20240530
